FAERS Safety Report 5911843-7 (Version None)
Quarter: 2008Q4

REPORT INFORMATION
  Report Type: 
  Country: None (occurrence: None)
  Receive Date: 20081008
  Receipt Date: 20080930
  Transmission Date: 20090506
  Serious: Yes (Other)
  Sender: FDA-Public Use
  Company Number: US-CELGENEUS-163-21880-08100041

PATIENT
  Age: 77 Year
  Sex: Female

DRUGS (2)
  1. REVLIMID [Suspect]
     Indication: MULTIPLE MYELOMA
     Route: 048
     Dates: start: 20080717
  2. REVLIMID [Suspect]
     Indication: AMYLOIDOSIS

REACTIONS (3)
  - PETECHIAE [None]
  - RASH [None]
  - SKIN DISORDER [None]
